FAERS Safety Report 16479493 (Version 1)
Quarter: 2019Q2

REPORT INFORMATION
  Report Type: Spontaneous
  Country: CA (occurrence: CA)
  Receive Date: 20190626
  Receipt Date: 20190626
  Transmission Date: 20190711
  Serious: Yes (Life-Threatening, Other)
  Sender: FDA-Public Use
  Company Number: CA-FRESENIUS KABI-FK201906848

PATIENT
  Age: 44 Year
  Sex: Male
  Weight: 101 kg

DRUGS (7)
  1. TICAGRELOR. [Concomitant]
     Active Substance: TICAGRELOR
     Indication: PRODUCT USED FOR UNKNOWN INDICATION
     Dosage: UNKNOWN
     Route: 065
  2. ARGATROBAN (MAUFACTURER UNKNOWN) [Suspect]
     Active Substance: ARGATROBAN
     Dosage: 0.5 UG/KG/ MIN TITRATED TO 3 UG/KG/MIN
     Route: 065
  3. ARGATROBAN (MAUFACTURER UNKNOWN) [Suspect]
     Active Substance: ARGATROBAN
     Dosage: RANGE OF 1.5 ML/HOUR
     Route: 065
  4. ACETYLSALICYLIC ACID [Concomitant]
     Active Substance: ASPIRIN
     Indication: PRODUCT USED FOR UNKNOWN INDICATION
     Dosage: UNKNOWN
     Route: 065
  5. ARGATROBAN (MAUFACTURER UNKNOWN) [Suspect]
     Active Substance: ARGATROBAN
     Indication: ANTICOAGULANT THERAPY
     Route: 065
  6. HEPARIN SODIUM (MANUFACTURER UNKNOWN) [Suspect]
     Active Substance: HEPARIN SODIUM
     Indication: ANTICOAGULANT THERAPY
     Dosage: 4000 UNITS
     Route: 065
  7. FUROSEMIDE. [Concomitant]
     Active Substance: FUROSEMIDE
     Indication: PRODUCT USED FOR UNKNOWN INDICATION
     Route: 065

REACTIONS (6)
  - Disseminated intravascular coagulation [Recovered/Resolved]
  - Cardiogenic shock [Recovered/Resolved]
  - Heparin-induced thrombocytopenia [Recovered/Resolved]
  - Product use in unapproved indication [Unknown]
  - Pulmonary oedema [Recovered/Resolved]
  - Cardiac arrest [Recovered/Resolved]
